FAERS Safety Report 18777482 (Version 2)
Quarter: 2021Q3

REPORT INFORMATION
  Report Type: Report from Study
  Country: US (occurrence: US)
  Receive Date: 20210123
  Receipt Date: 20210811
  Transmission Date: 20211014
  Serious: No
  Sender: FDA-Public Use
  Company Number: US-TAKEDA-2021TUS003243

PATIENT
  Sex: Female
  Weight: 107 kg

DRUGS (19)
  1. CUVITRU [Suspect]
     Active Substance: HUMAN IMMUNOGLOBULIN G
     Indication: IMMUNODEFICIENCY COMMON VARIABLE
     Dosage: 22 GRAM, 1/WEEK
     Route: 058
     Dates: start: 20171108
  2. METHOTREXATE. [Concomitant]
     Active Substance: METHOTREXATE
  3. METAXALL [Concomitant]
     Active Substance: METAXALONE
  4. DIPHENHYDRAMINE. [Concomitant]
     Active Substance: DIPHENHYDRAMINE
  5. LEXAPRO [Concomitant]
     Active Substance: ESCITALOPRAM OXALATE
  6. HYDROCORTISONE. [Concomitant]
     Active Substance: HYDROCORTISONE
  7. VITAMIN D3 [Concomitant]
     Active Substance: CHOLECALCIFEROL
  8. FUROSEMIDE. [Concomitant]
     Active Substance: FUROSEMIDE
  9. PROTONIX [Concomitant]
     Active Substance: PANTOPRAZOLE SODIUM
  10. ZYRTEC [Concomitant]
     Active Substance: CETIRIZINE HYDROCHLORIDE
  11. KLOR?CON [Concomitant]
     Active Substance: POTASSIUM CHLORIDE
  12. EPINEPHRINE. [Concomitant]
     Active Substance: EPINEPHRINE
  13. ELIQUIS [Concomitant]
     Active Substance: APIXABAN
  14. AMOXICILLIN. [Concomitant]
     Active Substance: AMOXICILLIN
  15. ACETAMINOPHEN. [Concomitant]
     Active Substance: ACETAMINOPHEN
  16. XIIDRA [Concomitant]
     Active Substance: LIFITEGRAST
  17. FOLIC ACID. [Concomitant]
     Active Substance: FOLIC ACID
  18. LMX4 [Concomitant]
     Active Substance: LIDOCAINE
  19. ZOLPIDEM [Concomitant]
     Active Substance: ZOLPIDEM TARTRATE

REACTIONS (3)
  - Weight increased [Unknown]
  - Sinusitis [Unknown]
  - Swelling [Unknown]
